FAERS Safety Report 8530417-5 (Version None)
Quarter: 2012Q3

REPORT INFORMATION
  Report Type: 
  Country: None (occurrence: None)
  Receive Date: 20120723
  Receipt Date: 20120716
  Transmission Date: 20120928
  Serious: Yes (Other)
  Sender: FDA-Public Use
  Company Number: FR-PFIZER INC-2012170180

PATIENT
  Age: 30 Year
  Sex: Male

DRUGS (7)
  1. ESCITALOPRAM [Concomitant]
     Indication: OSTEOGENESIS IMPERFECTA
     Dosage: 20 MG, 1X/DAY
  2. MORPHINE SULFATE [Concomitant]
     Indication: OSTEOGENESIS IMPERFECTA
     Dosage: 300 MG, 1X/DAY
  3. LYRICA [Suspect]
     Dosage: 175 MG, 1X/DAY, 25MG IN THE MORNING AND 150 IN THE EVENING
     Route: 048
     Dates: start: 20111227, end: 20120123
  4. LYRICA [Suspect]
     Indication: NEURALGIA
     Dosage: 225 MG, 1X/DAY, 75 MG IN THE MORNING AND 150 MG IN THE EVENING
     Route: 048
     Dates: start: 20111220, end: 20111226
  5. METHADONE HYDROCHLORIDE [Concomitant]
     Indication: OSTEOGENESIS IMPERFECTA
     Dosage: 160 MG, 1X/DAY
  6. PRAZEPAM [Concomitant]
     Indication: OSTEOGENESIS IMPERFECTA
     Dosage: 60 MG, 1X/DAY
  7. CLONAZEPAM [Concomitant]
     Indication: OSTEOGENESIS IMPERFECTA
     Dosage: 15 GTT, 1X/DAY

REACTIONS (2)
  - TENSION HEADACHE [None]
  - MUSCLE TIGHTNESS [None]
